FAERS Safety Report 6718687-7 (Version None)
Quarter: 2010Q2

REPORT INFORMATION
  Report Type: 
  Country: None (occurrence: None)
  Receive Date: 20100506
  Receipt Date: 20100423
  Transmission Date: 20101027
  Serious: Yes (Life-Threatening, Hospitalization)
  Sender: FDA-Public Use
  Company Number: IPC201004-000116

PATIENT
  Age: 34 Year
  Sex: Female

DRUGS (2)
  1. PROPRANOLOL HYDROCHLORIDE [Suspect]
     Dosage: ORAL
     Route: 048
  2. CLONAZEPAM [Suspect]
     Dosage: ORAL
     Route: 048

REACTIONS (4)
  - BRADYCARDIA [None]
  - HYPOTENSION [None]
  - HYPOVENTILATION [None]
  - UNRESPONSIVE TO STIMULI [None]
